FAERS Safety Report 21908500 (Version 5)
Quarter: 2023Q1

REPORT INFORMATION
  Report Type: Spontaneous
  Country: HR (occurrence: HR)
  Receive Date: 20230125
  Receipt Date: 20230224
  Transmission Date: 20230418
  Serious: Yes (Death, Hospitalization, Other)
  Sender: FDA-Public Use
  Company Number: HR-BAYER-2022P026807

PATIENT
  Age: 73 Year
  Sex: Male

DRUGS (5)
  1. SUNITINIB [Suspect]
     Active Substance: SUNITINIB
     Indication: Renal cancer metastatic
     Dosage: 50 MG, 4 WEEKS OF INTAKE FOLLOWED BY 2-WEEK PAUSE
     Route: 065
     Dates: start: 202110, end: 202204
  2. SUNITINIB [Suspect]
     Active Substance: SUNITINIB
     Indication: Clear cell renal cell carcinoma
     Dosage: DOSE WAS REDUCED TO 37.5 MG
     Route: 065
     Dates: start: 202204
  3. NEXAVAR [Suspect]
     Active Substance: SORAFENIB
     Indication: Renal cancer metastatic
     Dosage: UNK
     Route: 065
  4. ASPIRIN [Concomitant]
     Active Substance: ASPIRIN
     Dosage: UNK
     Route: 065
  5. CORTEF [Concomitant]
     Active Substance: HYDROCORTISONE
     Indication: Product used for unknown indication
     Dosage: UNK, (15 PLUS 10 MG)
     Route: 065

REACTIONS (16)
  - Haemodynamic instability [Fatal]
  - Circulatory collapse [Fatal]
  - Acute coronary syndrome [Fatal]
  - Cardiotoxicity [Unknown]
  - Angiopathy [Unknown]
  - Cardiac disorder [Unknown]
  - Hemiplegia [Recovered/Resolved]
  - Nephropathy toxic [Not Recovered/Not Resolved]
  - Electrocardiogram ST segment elevation [Unknown]
  - Myocardial infarction [Unknown]
  - Thrombosis [Unknown]
  - Coronary artery occlusion [Recovered/Resolved]
  - Cold sweat [Unknown]
  - Chest pain [Unknown]
  - Pyrexia [Unknown]
  - Blood creatinine increased [Unknown]

NARRATIVE: CASE EVENT DATE: 20220501
